FAERS Safety Report 14110819 (Version 1)
Quarter: 2017Q4

REPORT INFORMATION
  Report Type: Spontaneous
  Country: US (occurrence: US)
  Receive Date: 20171020
  Receipt Date: 20171020
  Transmission Date: 20180321
  Serious: Yes (Hospitalization)
  Sender: FDA-Public Use
  Company Number: None

PATIENT
  Sex: Female
  Weight: 69.75 kg

DRUGS (6)
  1. CRESTOR [Concomitant]
     Active Substance: ROSUVASTATIN CALCIUM
  2. HUMIRA [Concomitant]
     Active Substance: ADALIMUMAB
  3. RECLAST [Suspect]
     Active Substance: ZOLEDRONIC ACID
     Indication: OSTEOPOROSIS
     Dosage: ANNUALLY; IV INFUSION?
     Route: 042
     Dates: start: 20131030, end: 20151030
  4. URSODIOL. [Concomitant]
     Active Substance: URSODIOL
  5. VITAMIN D [Concomitant]
     Active Substance: CHOLECALCIFEROL
  6. CALCIUM [Concomitant]
     Active Substance: CALCIUM

REACTIONS (2)
  - Stress fracture [None]
  - Femur fracture [None]

NARRATIVE: CASE EVENT DATE: 20170825
